FAERS Safety Report 5144275-2 (Version None)
Quarter: 2006Q4

REPORT INFORMATION
  Report Type: 
  Country: None (occurrence: None)
  Receive Date: 20061106
  Receipt Date: 20050324
  Transmission Date: 20070319
  Serious: Yes (Hospitalization)
  Sender: FDA-Public Use
  Company Number: US-BRISTOL-MYERS SQUIBB COMPANY-12910923

PATIENT
  Age: 53 Year
  Sex: Male

DRUGS (9)
  1. BLINDED: ARIPIPRAZOLE [Suspect]
     Indication: BIPOLAR DISORDER
     Route: 048
     Dates: start: 20041117, end: 20050320
  2. BLINDED: LITHIUM [Suspect]
     Indication: BIPOLAR DISORDER
     Route: 048
     Dates: start: 20041117, end: 20050320
  3. BLINDED: PLACEBO [Suspect]
     Indication: BIPOLAR DISORDER
     Route: 048
     Dates: start: 20041117, end: 20050320
  4. ASPIRIN [Concomitant]
     Dates: start: 20041209
  5. SIMVASTATIN [Concomitant]
     Dates: start: 20041209
  6. ENALAPRIL MALEATE [Concomitant]
     Dates: start: 20041209
  7. OMEPRAZOLE [Concomitant]
     Dates: start: 20041209
  8. GLIPIZIDE [Concomitant]
     Dates: start: 20041209
  9. IBUPROFEN [Concomitant]
     Dates: start: 20041209

REACTIONS (2)
  - DEHYDRATION [None]
  - RENAL FAILURE [None]
